FAERS Safety Report 5745070-3 (Version None)
Quarter: 2008Q2

REPORT INFORMATION
  Report Type: 
  Country: None (occurrence: None)
  Receive Date: 20080521
  Receipt Date: 20080514
  Transmission Date: 20081010
  Serious: Yes (Life-Threatening, Hospitalization, Other)
  Sender: FDA-Public Use
  Company Number: US-AMGEN-US057181

PATIENT
  Sex: Female

DRUGS (16)
  1. KINERET [Suspect]
     Indication: RHEUMATOID ARTHRITIS
  2. PLAQUENIL [Suspect]
     Route: 048
     Dates: start: 20020317
  3. PREDNISONE TAB [Suspect]
     Route: 065
     Dates: start: 20020311
  4. SULFASALAZINE [Suspect]
     Route: 048
     Dates: start: 20020311, end: 20020717
  5. TAMOXIFEN CITRATE [Concomitant]
     Route: 065
     Dates: start: 20020311
  6. AMBIEN [Concomitant]
     Route: 065
     Dates: start: 20020311
  7. XANAX [Concomitant]
     Route: 065
     Dates: start: 20020311
  8. HYDROCODONE BITARTRATE [Concomitant]
     Route: 065
     Dates: start: 20020311
  9. FOSAMAX [Concomitant]
     Route: 065
     Dates: start: 20020311
  10. FENTANYL [Concomitant]
     Route: 062
     Dates: start: 20020717
  11. VIOXX [Concomitant]
     Route: 065
     Dates: start: 20020311
  12. ZOLOFT [Concomitant]
     Route: 065
     Dates: start: 20020717
  13. ATIVAN [Concomitant]
     Route: 065
  14. ALTACE [Concomitant]
     Route: 065
  15. TOPROL-XL [Concomitant]
     Route: 065
  16. PEPCID [Concomitant]
     Route: 065

REACTIONS (5)
  - ACUTE RESPIRATORY DISTRESS SYNDROME [None]
  - DEEP VEIN THROMBOSIS [None]
  - PNEUMONIA STAPHYLOCOCCAL [None]
  - PNEUMONIA STREPTOCOCCAL [None]
  - SEPSIS [None]
